FAERS Safety Report 25627863 (Version 1)
Quarter: 2025Q3

REPORT INFORMATION
  Report Type: Spontaneous
  Country: US (occurrence: US)
  Receive Date: 20250731
  Receipt Date: 20250731
  Transmission Date: 20251021
  Serious: Yes (Other)
  Sender: PFIZER
  Company Number: US-PFIZER INC-PV202500092150

PATIENT
  Age: 59 Year
  Sex: Female

DRUGS (2)
  1. IBRANCE [Suspect]
     Active Substance: PALBOCICLIB
     Dates: end: 2025
  2. ANASTROZOLE [Concomitant]
     Active Substance: ANASTROZOLE
     Dates: end: 2025

REACTIONS (7)
  - Weight increased [Recovering/Resolving]
  - Skin discolouration [Unknown]
  - Oedema peripheral [Unknown]
  - Dizziness [Unknown]
  - Abdominal pain [Unknown]
  - Dyspepsia [Unknown]
  - Dysphagia [Unknown]
